FAERS Safety Report 17102027 (Version 1)
Quarter: 2019Q4

REPORT INFORMATION
  Report Type: Spontaneous
  Country: US (occurrence: US)
  Receive Date: 20191202
  Receipt Date: 20191202
  Transmission Date: 20200122
  Serious: No
  Sender: FDA-Public Use
  Company Number: US-BAUSCH-BL-2019-062623

PATIENT
  Sex: Female

DRUGS (1)
  1. LUMIFY [Suspect]
     Active Substance: BRIMONIDINE TARTRATE
     Indication: PRODUCT USED FOR UNKNOWN INDICATION
     Route: 047
     Dates: start: 201908, end: 201911

REACTIONS (8)
  - Eyelid bleeding [Recovering/Resolving]
  - Eye swelling [Recovering/Resolving]
  - Skin irritation [Not Recovered/Not Resolved]
  - Dermatitis atopic [Recovering/Resolving]
  - Dandruff [Recovering/Resolving]
  - Eyelid margin crusting [Recovering/Resolving]
  - Eye pain [Recovering/Resolving]
  - Vision blurred [Not Recovered/Not Resolved]

NARRATIVE: CASE EVENT DATE: 2019
